FAERS Safety Report 10143933 (Version 1)
Quarter: 2014Q2

REPORT INFORMATION
  Report Type: Report from Study
  Country: GB (occurrence: GB)
  Receive Date: 20140430
  Receipt Date: 20140430
  Transmission Date: 20141212
  Serious: Yes (Other)
  Sender: FDA-Public Use
  Company Number: GB-ABBVIE-14P-167-1228028-00

PATIENT
  Sex: 0

DRUGS (1)
  1. HUMIRA [Suspect]
     Indication: CROHN^S DISEASE

REACTIONS (8)
  - Memory impairment [Unknown]
  - Eye disorder [Unknown]
  - Visual impairment [Unknown]
  - Vision blurred [Unknown]
  - Cognitive disorder [Unknown]
  - Fibromyalgia [Unknown]
  - Feeling abnormal [Unknown]
  - Anxiety [Unknown]
